FAERS Safety Report 8963042 (Version 1)
Quarter: 2012Q4

REPORT INFORMATION
  Report Type: Spontaneous
  Country: BB (occurrence: None)
  Receive Date: 20121205
  Receipt Date: 20121205
  Transmission Date: 20130627
  Serious: Yes (Life-Threatening, Hospitalization)
  Sender: FDA-Public Use
  Company Number: 2012000246

PATIENT
  Age: 64 Year
  Sex: Male

DRUGS (1)
  1. ACEON (PERINDOPRIL ERBUMINE) TABLET [Suspect]
     Indication: HYPERTENSION
     Dosage: 10 mg, qd
     Dates: start: 20120716, end: 20120718

REACTIONS (2)
  - Pulmonary oedema [None]
  - Angioedema [None]
